FAERS Safety Report 7611756-9 (Version None)
Quarter: 2011Q3

REPORT INFORMATION
  Report Type: 
  Country: None (occurrence: None)
  Receive Date: 20110715
  Receipt Date: 20110705
  Transmission Date: 20111222
  Serious: Yes (Hospitalization)
  Sender: FDA-Public Use
  Company Number: RU-SANOFI-AVENTIS-2011SA043746

PATIENT
  Age: 71 Year
  Sex: Male
  Weight: 80 kg

DRUGS (8)
  1. ASPIRIN [Concomitant]
  2. BISOPROLOL [Concomitant]
  3. BISOPROLOL [Concomitant]
     Dates: start: 20110210
  4. AMLODIPINE [Concomitant]
  5. FOSINOPRIL SODIUM [Concomitant]
  6. DIGOXIN [Concomitant]
     Dates: start: 20110209
  7. DRONEDARONE HCL [Suspect]
     Indication: ATRIAL FIBRILLATION
     Route: 048
     Dates: start: 20110209, end: 20110309
  8. DIGOXIN [Concomitant]

REACTIONS (1)
  - ISCHAEMIC STROKE [None]
